FAERS Safety Report 11179697 (Version 1)
Quarter: 2015Q2

REPORT INFORMATION
  Report Type: Spontaneous
  Country: US (occurrence: None)
  Receive Date: 20150609
  Receipt Date: 20150609
  Transmission Date: 20150821
  Serious: Yes (Hospitalization)
  Sender: FDA-Public Use
  Company Number: None

PATIENT
  Age: 67 Year
  Sex: Female

DRUGS (2)
  1. AROMASIN [Concomitant]
     Active Substance: EXEMESTANE
  2. IBANDRONATE SODIUM. [Suspect]
     Active Substance: IBANDRONATE SODIUM
     Indication: OSTEOPENIA
     Dosage: 1 PILL
     Route: 048
     Dates: start: 20150601, end: 20150601

REACTIONS (13)
  - Vomiting [None]
  - Loss of consciousness [None]
  - Head injury [None]
  - Contusion [None]
  - Feeling cold [None]
  - Diarrhoea [None]
  - Bone pain [None]
  - Pain in extremity [None]
  - Abdominal pain lower [None]
  - Nausea [None]
  - Abdominal pain upper [None]
  - Headache [None]
  - Swelling face [None]

NARRATIVE: CASE EVENT DATE: 20150602
